FAERS Safety Report 10746431 (Version 1)
Quarter: 2015Q1

REPORT INFORMATION
  Report Type: Report from Study
  Country: US (occurrence: US)
  Receive Date: 20150128
  Receipt Date: 20150128
  Transmission Date: 20150721
  Serious: Yes (Other)
  Sender: FDA-Public Use
  Company Number: US-BIOGENIDEC-2015BI010042

PATIENT
  Age: 47 Year
  Sex: Female

DRUGS (1)
  1. TYSABRI [Suspect]
     Active Substance: NATALIZUMAB
     Indication: MULTIPLE SCLEROSIS
     Route: 042
     Dates: start: 20140805, end: 20141124

REACTIONS (6)
  - Hypotension [Recovered/Resolved]
  - Body temperature decreased [Recovered/Resolved]
  - Drug specific antibody present [Not Recovered/Not Resolved]
  - Muscle spasms [Recovered/Resolved]
  - Depressed level of consciousness [Recovered/Resolved]
  - Ankle fracture [Not Recovered/Not Resolved]

NARRATIVE: CASE EVENT DATE: 20141124
